FAERS Safety Report 9616323 (Version 1)
Quarter: 2013Q4

REPORT INFORMATION
  Report Type: Spontaneous
  Country: GB (occurrence: GB)
  Receive Date: 20131011
  Receipt Date: 20131011
  Transmission Date: 20140711
  Serious: Yes (Hospitalization, Disabling, Other)
  Sender: FDA-Public Use
  Company Number: GB-TEVA-436370ISR

PATIENT
  Age: 48 Year
  Sex: Female

DRUGS (4)
  1. PHENYTOIN [Suspect]
     Dosage: 300 MILLIGRAM DAILY; LONG TERM
     Route: 048
  2. ZONEGRAN [Interacting]
     Indication: CONVULSION
     Route: 048
     Dates: start: 20120801, end: 20120816
  3. KEPPRA [Concomitant]
     Dosage: 2 GRAM DAILY; LONG TERM
     Route: 048
  4. GABAPENTIN [Concomitant]
     Dosage: 1800 MILLIGRAM DAILY; LONG TERM
     Route: 048

REACTIONS (4)
  - Anticonvulsant drug level increased [Recovered/Resolved]
  - Agitation [Recovered/Resolved]
  - Mobility decreased [Recovered/Resolved]
  - Potentiating drug interaction [Unknown]
